FAERS Safety Report 17119814 (Version 2)
Quarter: 2020Q1

REPORT INFORMATION
  Report Type: Spontaneous
  Country: IT (occurrence: IT)
  Receive Date: 20191206
  Receipt Date: 20200120
  Transmission Date: 20200409
  Serious: Yes (Hospitalization, Other)
  Sender: FDA-Public Use
  Company Number: IT-009507513-1911ITA011821

PATIENT
  Age: 67 Year
  Sex: Male

DRUGS (8)
  1. RAMIPRIL. [Concomitant]
     Active Substance: RAMIPRIL
     Dosage: TAKEN AT 8.00 A.M.
  2. ASPIRIN. [Concomitant]
     Active Substance: ASPIRIN
     Dosage: TAKEN AT 01.00 P.M
  3. BISOPROLOL [Concomitant]
     Active Substance: BISOPROLOL
     Dosage: TAKEN AT 12.00 P.M
  4. ZEPATIER [Suspect]
     Active Substance: ELBASVIR\GRAZOPREVIR
     Indication: HEPATITIS C
     Dosage: 1 TABLET AT 08.00 P.M. (AFTER THE MEAL)
     Route: 048
     Dates: start: 20190319, end: 20190514
  5. LANSOPRAZOLE. [Concomitant]
     Active Substance: LANSOPRAZOLE
     Dosage: TAKEN AT 8.00 A.M.
  6. FUROSEMIDE. [Concomitant]
     Active Substance: FUROSEMIDE
     Dosage: TAKEN AT 8.00 A.M. AND 04.00 P.M.
  7. CANRENONE [Concomitant]
     Active Substance: CANRENONE
     Dosage: TAKEN AT 04.00 P.M.
  8. AMIODARONE [Concomitant]
     Active Substance: AMIODARONE
     Dosage: TAKEN AT 04.00 P.M.

REACTIONS (5)
  - Cholecystitis acute [Recovered/Resolved]
  - Bladder dilatation [Unknown]
  - Therapeutic response unexpected [Unknown]
  - Therapy cessation [Unknown]
  - Arteriosclerosis [Unknown]

NARRATIVE: CASE EVENT DATE: 201905
